FAERS Safety Report 22936537 (Version 4)
Quarter: 2023Q4

REPORT INFORMATION
  Report Type: Other
  Country: IN (occurrence: None)
  Receive Date: 20230912
  Receipt Date: 20231110
  Transmission Date: 20240110
  Serious: Yes (Hospitalization)
  Sender: FDA-Public Use
  Company Number: IN-ROCHE-3398224

PATIENT
  Age: 59 Year
  Sex: Male
  Weight: 66.3 kg

DRUGS (29)
  1. ATEZOLIZUMAB [Suspect]
     Active Substance: ATEZOLIZUMAB
     Indication: Hepatocellular carcinoma
     Dosage: ON 04/AUG/2023, MOST RECENT DOSE OF 1200 MG OF ATEZOLIZUMAB WAS ADMINISTERED PRIOR TO SAE.
     Route: 041
     Dates: start: 20230513
  2. BEVACIZUMAB [Suspect]
     Active Substance: BEVACIZUMAB
     Indication: Hepatocellular carcinoma
     Route: 065
     Dates: start: 20230513
  3. DEXAMETHASONE [Concomitant]
     Active Substance: DEXAMETHASONE
     Dates: start: 20230714, end: 20230714
  4. DEXAMETHASONE [Concomitant]
     Active Substance: DEXAMETHASONE
     Dates: start: 20230804, end: 20230804
  5. PALONOSETRON [Concomitant]
     Active Substance: PALONOSETRON
     Dates: start: 20230714, end: 20230714
  6. PALONOSETRON [Concomitant]
     Active Substance: PALONOSETRON
     Dates: start: 20230804, end: 20230804
  7. PHENIRAMINE MALEATE [Concomitant]
     Active Substance: PHENIRAMINE MALEATE
     Dates: start: 20230714, end: 20230714
  8. PHENIRAMINE MALEATE [Concomitant]
     Active Substance: PHENIRAMINE MALEATE
     Dates: start: 20230804, end: 20230804
  9. RANITIDINE [Concomitant]
     Active Substance: RANITIDINE
     Dates: start: 20230714, end: 20230714
  10. RANITIDINE [Concomitant]
     Active Substance: RANITIDINE
     Dates: start: 20230804, end: 20230804
  11. AMLODIPINE [Concomitant]
     Active Substance: AMLODIPINE BESYLATE
     Dates: start: 20230505
  12. PANTOPRAZOLE SODIUM [Concomitant]
     Active Substance: PANTOPRAZOLE SODIUM
     Dates: start: 20230505
  13. GERBISA [Concomitant]
     Indication: Constipation
     Dates: start: 20230520
  14. ONDANSETRON HYDROCHLORIDE [Concomitant]
     Active Substance: ONDANSETRON HYDROCHLORIDE
     Indication: Vomiting
     Dates: start: 20230520
  15. URSODIOL [Concomitant]
     Active Substance: URSODIOL
     Dates: start: 20230520
  16. MAXGALIN [Concomitant]
     Indication: Neuralgia
     Route: 048
     Dates: start: 20230505
  17. ENUFF [Concomitant]
     Dates: start: 20230629, end: 20230703
  18. VIZYLAC [Concomitant]
     Dates: start: 20230629, end: 20230703
  19. DOLO 650 [Concomitant]
     Dates: start: 20230629, end: 20230703
  20. PREGABALIN [Concomitant]
     Active Substance: PREGABALIN
     Indication: Neuralgia
     Dates: start: 20230703
  21. PREGABALIN [Concomitant]
     Active Substance: PREGABALIN
     Dates: start: 20230703
  22. CONTRAMAL DT [Concomitant]
     Indication: Pain
     Route: 048
     Dates: start: 20230603
  23. CEFIXIME [Concomitant]
     Active Substance: CEFIXIME
     Indication: Bacterial infection
     Dates: start: 20230703
  24. RIFAXIMIN [Concomitant]
     Active Substance: RIFAXIMIN
     Indication: Hepatic encephalopathy
     Dates: start: 20230703
  25. ACETYLCYSTEINE [Concomitant]
     Active Substance: ACETYLCYSTEINE
     Indication: Emphysema
     Dates: start: 20230703
  26. PAN [Concomitant]
     Dates: start: 20230703
  27. DOMPERIDONE\RABEPRAZOLE [Concomitant]
     Active Substance: DOMPERIDONE\RABEPRAZOLE
     Indication: Gastrooesophageal reflux disease
     Dates: start: 20230714
  28. TRAMADOL [Concomitant]
     Active Substance: TRAMADOL\TRAMADOL HYDROCHLORIDE
     Indication: Pain
     Dates: start: 20230710
  29. ACETAMINOPHEN [Concomitant]
     Active Substance: ACETAMINOPHEN
     Indication: Analgesic therapy
     Dates: start: 20230714

REACTIONS (2)
  - Jaundice [Recovered/Resolved]
  - Bone pain [Not Recovered/Not Resolved]

NARRATIVE: CASE EVENT DATE: 20230801
